FAERS Safety Report 5733814-6 (Version None)
Quarter: 2008Q2

REPORT INFORMATION
  Report Type: 
  Country: None (occurrence: None)
  Receive Date: 20080509
  Receipt Date: 20080429
  Transmission Date: 20081010
  Serious: Yes (Hospitalization)
  Sender: FDA-Public Use
  Company Number: US-ELI_LILLY_AND_COMPANY-US200804002599

PATIENT
  Age: 70 Year
  Sex: Female

DRUGS (4)
  1. BYETTA [Suspect]
     Indication: DIABETES MELLITUS
     Dosage: 5 UG, 2/D
     Route: 058
  2. BYETTA [Suspect]
     Dosage: 5 UG, 2/D
     Route: 058
  3. FLUOXETINE HYDROCHLORIDE [Concomitant]
     Indication: MAJOR DEPRESSION
     Dosage: 20 MG, DAILY (1/D)
  4. VENLAFAXINE HCL [Concomitant]
     Indication: MAJOR DEPRESSION
     Dosage: 150 MG, DAILY (1/D)

REACTIONS (2)
  - DEPRESSION [None]
  - MAJOR DEPRESSION [None]
